FAERS Safety Report 10733307 (Version 1)
Quarter: 2015Q1

REPORT INFORMATION
  Report Type: Spontaneous
  Country: GB (occurrence: None)
  Receive Date: 20150120
  Receipt Date: 20150120
  Transmission Date: 20150721
  Serious: Yes (Hospitalization)
  Sender: FDA-Public Use
  Company Number: 2015006172

PATIENT
  Age: 72 Year
  Sex: Male
  Weight: 76 kg

DRUGS (9)
  1. DALTEPARIN SODIUM (DALTEPARIN SODIUM) UNKNOWN [Suspect]
     Active Substance: DALTEPARIN SODIUM
     Dosage: 15000 UNITS PER 0.6 ML., SUBCUTANEOUS
     Route: 058
  2. TAMSULOSIN (TAMSULOSIN) [Concomitant]
     Active Substance: TAMSULOSIN
  3. OMEPRAZOLE (OMEPRAZOLE) [Concomitant]
     Active Substance: OMEPRAZOLE
  4. FOLIC ACID (FOLIC ACID) [Concomitant]
     Active Substance: FOLIC ACID
  5. SENNA (SENNA) [Concomitant]
  6. FINASTERIDE (FINASTERIDE) [Concomitant]
     Active Substance: FINASTERIDE
  7. DOXYCYCLINE. [Concomitant]
     Active Substance: DOXYCYCLINE
  8. LACTULOSE (LACTULOSE) [Concomitant]
     Active Substance: LACTULOSE
  9. SALBUTAMOL (SALBUTAMOL) [Concomitant]
     Active Substance: ALBUTEROL

REACTIONS (4)
  - Chest pain [None]
  - Pulmonary embolism [None]
  - Drug ineffective [None]
  - Dyspnoea [None]

NARRATIVE: CASE EVENT DATE: 20141201
